FAERS Safety Report 24273147 (Version 3)
Quarter: 2025Q2

REPORT INFORMATION
  Report Type: Spontaneous
  Country: DE (occurrence: DE)
  Receive Date: 20240902
  Receipt Date: 20250404
  Transmission Date: 20250717
  Serious: Yes (Other)
  Sender: AUROBINDO
  Company Number: DE-EMA-20141103-deeptisp-113902608

PATIENT
  Age: 80 Year
  Sex: Male

DRUGS (6)
  1. HYDROCORTISONE [Suspect]
     Active Substance: HYDROCORTISONE
     Indication: Kaposi^s sarcoma
     Route: 065
  2. PREDNISOLONE [Suspect]
     Active Substance: PREDNISOLONE
     Indication: Myasthenia gravis
     Dosage: 5 MILLIGRAM, ONCE A DAY
     Route: 065
  3. AZATHIOPRINE [Suspect]
     Active Substance: AZATHIOPRINE
     Indication: Myasthenia gravis
     Dosage: 40 MILLIGRAM, ONCE A DAY
     Route: 065
     Dates: start: 2008
  4. EVEROLIMUS [Concomitant]
     Active Substance: EVEROLIMUS
     Indication: Product used for unknown indication
     Dosage: 0.75 MILLIGRAM, ONCE A DAY )(0.5 MG AT MORNING, 0.25 MG AT NIGHT)
     Route: 065
  5. EVEROLIMUS [Concomitant]
     Active Substance: EVEROLIMUS
     Dosage: 1 MILLIGRAM, ONCE A DAY (0.5 MG, BID)
     Route: 065
  6. EVEROLIMUS [Concomitant]
     Active Substance: EVEROLIMUS
     Dosage: 2 MILLIGRAM, ONCE A DAY
     Route: 065

REACTIONS (10)
  - Renal failure [Unknown]
  - Immunosuppression [Unknown]
  - Skin disorder [Unknown]
  - Human herpesvirus 8 infection [Unknown]
  - Skin lesion [Recovering/Resolving]
  - Macule [Recovering/Resolving]
  - Antiacetylcholine receptor antibody positive [Recovering/Resolving]
  - Skin mass [Recovering/Resolving]
  - Kaposi^s sarcoma [Recovered/Resolved]
  - Drug ineffective for unapproved indication [Unknown]

NARRATIVE: CASE EVENT DATE: 20080101
